FAERS Safety Report 12996535 (Version 1)
Quarter: 2016Q4

REPORT INFORMATION
  Report Type: Spontaneous
  Country: US (occurrence: US)
  Receive Date: 20161204
  Receipt Date: 20161204
  Transmission Date: 20170207
  Serious: Yes (Hospitalization)
  Sender: FDA-Public Use
  Company Number: US-GLAXOSMITHKLINE-US2016178357

PATIENT
  Age: 90 Year
  Sex: Female

DRUGS (2)
  1. VOLTAREN [Suspect]
     Active Substance: DICLOFENAC SODIUM
     Indication: ERYTHEMA
  2. VOLTAREN [Suspect]
     Active Substance: DICLOFENAC SODIUM
     Indication: LOCALISED INFECTION
     Dosage: UNK
     Route: 061
     Dates: start: 2015

REACTIONS (6)
  - Knee operation [Recovering/Resolving]
  - Lower limb fracture [Recovered/Resolved]
  - Fall [Recovering/Resolving]
  - Peripheral swelling [Not Recovered/Not Resolved]
  - Expired product administered [Unknown]
  - Off label use [Unknown]

NARRATIVE: CASE EVENT DATE: 2016
